FAERS Safety Report 5447620-3 (Version None)
Quarter: 2007Q3

REPORT INFORMATION
  Report Type: 
  Country: None (occurrence: None)
  Receive Date: 20070910
  Receipt Date: 20070828
  Transmission Date: 20080115
  Serious: Yes (Other)
  Sender: FDA-Public Use
  Company Number: GB-ROCHE-512030

PATIENT
  Age: 33 Year
  Sex: Female
  Weight: 132 kg

DRUGS (2)
  1. XENICAL [Suspect]
     Indication: OBESITY
     Route: 048
     Dates: start: 20070613, end: 20070808
  2. METFORMIN HCL [Concomitant]
     Indication: HORMONE THERAPY

REACTIONS (1)
  - ABORTION SPONTANEOUS [None]
